FAERS Safety Report 17489245 (Version 1)
Quarter: 2020Q1

REPORT INFORMATION
  Report Type: Spontaneous
  Country: US (occurrence: US)
  Receive Date: 20200221
  Receipt Date: 20200221
  Transmission Date: 20200409
  Serious: Yes (Death)
  Sender: FDA-Public Use
  Company Number: None

PATIENT
  Age: 80 Year
  Sex: Male

DRUGS (8)
  1. LANTUS [Concomitant]
     Active Substance: INSULIN GLARGINE
  2. VITAMIN D3 [Concomitant]
     Active Substance: CHOLECALCIFEROL
  3. ARANESP [Concomitant]
     Active Substance: DARBEPOETIN ALFA
  4. CARVEDILOL. [Concomitant]
     Active Substance: CARVEDILOL
  5. FAMCICLOVIR. [Concomitant]
     Active Substance: FAMCICLOVIR
  6. MAGNESIUM [Concomitant]
     Active Substance: MAGNESIUM
  7. ASPIRIN. [Concomitant]
     Active Substance: ASPIRIN
  8. JADENU [Suspect]
     Active Substance: DEFERASIROX
     Route: 048
     Dates: start: 20180126, end: 20191204

REACTIONS (1)
  - Death [None]

NARRATIVE: CASE EVENT DATE: 20191204
